FAERS Safety Report 9161364 (Version 1)
Quarter: 2013Q1

REPORT INFORMATION
  Report Type: Spontaneous
  Country: US (occurrence: US)
  Receive Date: 20130313
  Receipt Date: 20130313
  Transmission Date: 20140127
  Serious: No
  Sender: FDA-Public Use
  Company Number: US-009507513-1303USA003210

PATIENT
  Age: 57 Year
  Sex: Male
  Weight: 93.4 kg

DRUGS (3)
  1. PEGINTRON [Suspect]
     Indication: HEPATITIS C
     Dosage: 150 MICROGRAM (0.5 ML), QW
     Route: 058
     Dates: start: 201302
  2. TELAPREVIR [Suspect]
     Dosage: 750 MG, TID
     Route: 048
  3. RIBASPHERE [Suspect]
     Dosage: 600 MG, BID

REACTIONS (3)
  - Influenza like illness [Unknown]
  - Anal pruritus [Unknown]
  - Anorectal discomfort [Unknown]
